FAERS Safety Report 5022907-7 (Version None)
Quarter: 2006Q2

REPORT INFORMATION
  Report Type: 
  Country: None (occurrence: None)
  Receive Date: 20060426
  Receipt Date: 20060309
  Transmission Date: 20061013
  Serious: Yes (Other)
  Sender: FDA-Public Use
  Company Number: 2006034480

PATIENT
  Age: 73 Year
  Sex: Female

DRUGS (8)
  1. LYRICA [Suspect]
     Indication: PAIN
     Dosage: 150 MG (50 MG, 3 IN 1 D)
     Dates: start: 20060101, end: 20060305
  2. PREVACID [Concomitant]
  3. ALLEGRA-D 12 HOUR [Concomitant]
  4. HYZAAR (HYDROCHLORITHIAZIDE, LOSARTAN POTASSIUM) [Concomitant]
  5. MOBIC [Concomitant]
  6. MECLIZINE [Concomitant]
  7. METHIMAZOLE [Concomitant]
  8. MULTIVITAMIN [Concomitant]

REACTIONS (11)
  - ASTHENIA [None]
  - CANDIDIASIS [None]
  - COORDINATION ABNORMAL [None]
  - COUGH [None]
  - DIZZINESS [None]
  - FALL [None]
  - FATIGUE [None]
  - PHARYNGOLARYNGEAL PAIN [None]
  - SWELLING [None]
  - TONSILLITIS [None]
  - URINARY INCONTINENCE [None]
